FAERS Safety Report 4505346-4 (Version None)
Quarter: 2004Q4

REPORT INFORMATION
  Report Type: 
  Country: None (occurrence: None)
  Receive Date: 20041116
  Receipt Date: 20041103
  Transmission Date: 20050328
  Serious: Yes (Other)
  Sender: FDA-Public Use
  Company Number: 2004088735

PATIENT
  Age: 13 Year
  Sex: Female
  Weight: 59 kg

DRUGS (2)
  1. CLINDAMYCIN PHOSPHATE [Suspect]
     Indication: ACNE
     Dosage: (INTERVAL: ONCE), TOPICAL
     Route: 061
     Dates: start: 20041026, end: 20041027
  2. BENZOYL PEROXIDE (BENZOYL PEROXIDE) [Suspect]
     Indication: ACNE
     Dosage: (INTERVAL: ONCE), TOPICAL
     Route: 061
     Dates: start: 20041026, end: 20041027

REACTIONS (2)
  - INFECTION [None]
  - SWELLING FACE [None]
